FAERS Safety Report 8515595-6 (Version None)
Quarter: 2012Q3

REPORT INFORMATION
  Report Type: 
  Country: None (occurrence: None)
  Receive Date: 20120717
  Receipt Date: 20120710
  Transmission Date: 20120928
  Serious: Yes (Other)
  Sender: FDA-Public Use
  Company Number: PHEH2012US013585

PATIENT
  Age: 58 Year
  Sex: Male
  Weight: 77.098 kg

DRUGS (6)
  1. ZANAFLEX [Concomitant]
  2. GILENYA [Suspect]
     Indication: MULTIPLE SCLEROSIS
     Dosage: 0.5 MG, QD
     Route: 048
     Dates: start: 20110203
  3. HYDROCODONE [Concomitant]
  4. TEMAZEPAM [Concomitant]
  5. EXCEDRIN (MIGRAINE) [Concomitant]
  6. CYMBALTA [Concomitant]

REACTIONS (2)
  - SKIN LESION [None]
  - SQUAMOUS CELL CARCINOMA [None]
